FAERS Safety Report 11772993 (Version 5)
Quarter: 2016Q3

REPORT INFORMATION
  Report Type: Report from Study
  Country: BR (occurrence: BR)
  Receive Date: 20151124
  Receipt Date: 20160816
  Transmission Date: 20161109
  Serious: Yes (Other)
  Sender: FDA-Public Use
  Company Number: PHHY2015BR152835

PATIENT
  Sex: Female
  Weight: 60 kg

DRUGS (10)
  1. NEOVIT [Concomitant]
     Indication: PRODUCT USED FOR UNKNOWN INDICATION
     Dosage: UNK
     Route: 065
  2. VITAMIN D [Concomitant]
     Active Substance: CHOLECALCIFEROL
     Indication: PRODUCT USED FOR UNKNOWN INDICATION
     Dosage: UNK
     Route: 065
  3. CALCIUM [Concomitant]
     Active Substance: CALCIUM
     Indication: MINERAL SUPPLEMENTATION
     Dosage: 1 DF, QD
     Route: 048
  4. ACLASTA [Suspect]
     Active Substance: ZOLEDRONIC ACID
     Dosage: UNK
     Route: 065
     Dates: start: 20150808
  5. REMERON [Concomitant]
     Active Substance: MIRTAZAPINE
     Dosage: UNK
  6. ABLOK [Concomitant]
     Active Substance: ATENOLOL
     Indication: HYPERTENSION
     Dosage: 50 MG, QD
     Route: 065
  7. EXODOS [Concomitant]
     Indication: PANIC DISORDER
     Dosage: 45 MG, UNK
     Route: 065
  8. RIVOTRIL [Concomitant]
     Active Substance: CLONAZEPAM
     Indication: PANIC DISORDER
     Dosage: 7 DROPS PER NIGHT,
     Route: 048
  9. REMERON [Concomitant]
     Active Substance: MIRTAZAPINE
     Indication: PANIC DISORDER
     Dosage: 1 DF, QD
     Route: 065
  10. ACLASTA [Suspect]
     Active Substance: ZOLEDRONIC ACID
     Indication: OSTEOPOROSIS
     Dosage: 5 MG, Q12MO
     Route: 042
     Dates: start: 20140701

REACTIONS (23)
  - Fall [Unknown]
  - Neoplasm malignant [Recovered/Resolved]
  - Peripheral swelling [Unknown]
  - Pain in extremity [Recovering/Resolving]
  - Bone pain [Unknown]
  - Lens disorder [Not Recovered/Not Resolved]
  - Abdominal discomfort [Unknown]
  - Varicose vein [Recovering/Resolving]
  - Balance disorder [Unknown]
  - Malaise [Unknown]
  - Rib fracture [Recovered/Resolved]
  - Neoplasm skin [Unknown]
  - Skin papilloma [Unknown]
  - Angiopathy [Recovering/Resolving]
  - Pallor [Unknown]
  - Melanocytic naevus [Recovering/Resolving]
  - Skin atrophy [Unknown]
  - Upper limb fracture [Recovered/Resolved]
  - Blindness [Unknown]
  - Cataract [Not Recovered/Not Resolved]
  - Gastritis [Unknown]
  - Concomitant disease aggravated [Unknown]
  - Erythema [Unknown]
